FAERS Safety Report 7761592-8 (Version None)
Quarter: 2011Q3

REPORT INFORMATION
  Report Type: 
  Country: None (occurrence: None)
  Receive Date: 20110920
  Receipt Date: 20110914
  Transmission Date: 20111222
  Serious: Yes (Other)
  Sender: FDA-Public Use
  Company Number: CH-UCBSA-041397

PATIENT
  Sex: Female

DRUGS (1)
  1. KEPPRA [Suspect]
     Route: 048
     Dates: start: 20110901, end: 20110901

REACTIONS (1)
  - ELECTROCARDIOGRAM QT PROLONGED [None]
